FAERS Safety Report 9299361 (Version 2)
Quarter: 2013Q4

REPORT INFORMATION
  Report Type: Spontaneous
  Country: US (occurrence: US)
  Receive Date: 20130520
  Receipt Date: 20131106
  Transmission Date: 20140711
  Serious: Yes (Hospitalization)
  Sender: FDA-Public Use
  Company Number: US-B.I. PHARMACEUTICALS,INC./RIDGEFIELD-2013-BI-13747BP

PATIENT
  Age: 65 Year
  Sex: Male
  Weight: 122.47 kg

DRUGS (16)
  1. PRADAXA [Suspect]
     Indication: ANTICOAGULANT THERAPY
     Dosage: 300 MG
     Dates: start: 20120111, end: 20120216
  2. PRADAXA [Suspect]
     Indication: ATRIAL FIBRILLATION
  3. COZAAR [Concomitant]
     Dosage: 50 MG
     Route: 048
  4. CRESTOR [Concomitant]
     Dosage: 20 MG
     Route: 048
  5. LASIX [Concomitant]
     Dosage: 40 MG
     Route: 048
  6. METANX [Concomitant]
     Route: 048
  7. ASPIRIN [Concomitant]
     Dosage: 81 MG
     Route: 048
  8. CARVEDILOL [Concomitant]
     Dosage: 12.5 MG
     Route: 048
  9. GLIPIZIDE [Concomitant]
     Dosage: 10 MG
     Route: 048
  10. PROTONIX [Concomitant]
     Dosage: 40 MG
     Route: 048
  11. POTASSIUM CHLORIDE [Concomitant]
     Dosage: 20 MEQ
     Route: 048
  12. MULTIVITAMIN [Concomitant]
     Route: 048
  13. METFORMIN ER [Concomitant]
     Dates: start: 2005, end: 201203
  14. MULTAQ [Concomitant]
  15. NOVOLOG [Concomitant]
  16. LANTUS [Concomitant]

REACTIONS (1)
  - Cerebral haemorrhage [Unknown]
